FAERS Safety Report 13717777 (Version 2)
Quarter: 2017Q3

REPORT INFORMATION
  Report Type: Spontaneous
  Country: SE (occurrence: SE)
  Receive Date: 20170705
  Receipt Date: 20170705
  Transmission Date: 20171127
  Serious: Yes (Other)
  Sender: FDA-Public Use
  Company Number: SE-CIPLA LTD.-2017SE11883

PATIENT

DRUGS (7)
  1. BUPROPION HYDROCHLORIDE. [Suspect]
     Active Substance: BUPROPION HYDROCHLORIDE
     Dosage: UNK
     Route: 065
  2. CETIRIZINE [Interacting]
     Active Substance: CETIRIZINE HYDROCHLORIDE
     Dosage: UNK
     Route: 065
  3. IMIGRAN [Interacting]
     Active Substance: SUMATRIPTAN SUCCINATE
     Dosage: UNK
     Route: 065
  4. RINEXIN [Interacting]
     Active Substance: PHENYLPROPANOLAMINE
     Dosage: UNK
     Route: 065
  5. TAVEGYL [Interacting]
     Active Substance: CLEMASTINE FUMARATE
     Dosage: UNK
     Route: 065
  6. SUMATRIPTAN SUCCINATE. [Interacting]
     Active Substance: SUMATRIPTAN SUCCINATE
     Dosage: UNK
     Route: 065
  7. LERGIGAN COMP [Interacting]
     Active Substance: CAFFEINE\EPHEDRINE\PROMETHAZINE
     Dosage: UNK
     Route: 065

REACTIONS (9)
  - Drug interaction [Unknown]
  - Headache [Recovered/Resolved]
  - Muscle spasms [Recovered/Resolved]
  - Chills [Recovered/Resolved]
  - Feeling of body temperature change [Recovered/Resolved]
  - Anxiety [Recovered/Resolved]
  - Dizziness [Recovered/Resolved]
  - Nausea [Recovered/Resolved]
  - Palpitations [Recovered/Resolved]
